FAERS Safety Report 10030889 (Version 2)
Quarter: 2014Q1

REPORT INFORMATION
  Report Type: Spontaneous
  Country: US (occurrence: US)
  Receive Date: 20140323
  Receipt Date: 20140323
  Transmission Date: 20141002
  Serious: No
  Sender: FDA-Public Use
  Company Number: US-ALLERGAN-1316273US

PATIENT
  Age: 67 Year
  Sex: Female

DRUGS (5)
  1. LATISSE 0.03% [Suspect]
     Indication: HYPOTRICHOSIS
     Dosage: UNK UNK, QHS
     Route: 047
     Dates: start: 20130829, end: 20131010
  2. LATISSE 0.03% [Suspect]
     Dosage: UNK UNK, QHS
     Route: 047
     Dates: start: 20130829, end: 20131010
  3. LATISSE 0.03% [Suspect]
     Dosage: UNK UNK, QHS
     Route: 047
     Dates: start: 20130829, end: 20131010
  4. CALCIUM [Concomitant]
     Indication: PRODUCT USED FOR UNKNOWN INDICATION
     Dosage: UNK
  5. MULTIVITAMINS [Concomitant]
     Indication: PRODUCT USED FOR UNKNOWN INDICATION
     Dosage: UNK

REACTIONS (3)
  - Wrong technique in drug usage process [Unknown]
  - Incorrect dose administered [Unknown]
  - Eyelids pruritus [Not Recovered/Not Resolved]
